FAERS Safety Report 9435855 (Version 1)
Quarter: 2013Q3

REPORT INFORMATION
  Report Type: Spontaneous
  Country: US (occurrence: US)
  Receive Date: 20130801
  Receipt Date: 20130801
  Transmission Date: 20140515
  Serious: No
  Sender: FDA-Public Use
  Company Number: US-B.I. PHARMACEUTICALS,INC./RIDGEFIELD-2013-BI-22673BP

PATIENT
  Age: 55 Year
  Sex: Male
  Weight: 104 kg

DRUGS (7)
  1. SPIRIVA [Suspect]
     Indication: CHRONIC OBSTRUCTIVE PULMONARY DISEASE
     Dosage: 18 MCG
     Route: 055
     Dates: start: 20130620, end: 20130627
  2. NORVASC [Concomitant]
     Indication: HYPERTENSION
     Dosage: 5 MG
     Route: 048
  3. ADVAIR [Concomitant]
     Indication: CHRONIC OBSTRUCTIVE PULMONARY DISEASE
     Route: 055
  4. ASPIRIN [Concomitant]
     Dosage: 325 MG
     Route: 048
  5. LISINOPRIL [Concomitant]
     Indication: HYPERTENSION
     Dosage: 20 MG
     Route: 048
  6. LISINOPRIL HCT [Concomitant]
     Indication: HYPERTENSION
     Dosage: STRENGTH: 25/20 MG; DAILY DOSE: 25/20 MG
     Route: 048
  7. VENTOLIN INALER [Concomitant]
     Indication: CHRONIC OBSTRUCTIVE PULMONARY DISEASE
     Route: 055

REACTIONS (6)
  - Dizziness [Not Recovered/Not Resolved]
  - Headache [Not Recovered/Not Resolved]
  - Insomnia [Recovered/Resolved]
  - Nausea [Not Recovered/Not Resolved]
  - Eye pain [Not Recovered/Not Resolved]
  - Reading disorder [Not Recovered/Not Resolved]
